FAERS Safety Report 11840665 (Version 1)
Quarter: 2015Q4

REPORT INFORMATION
  Report Type: Spontaneous
  Country: JP (occurrence: JP)
  Receive Date: 20151216
  Receipt Date: 20151216
  Transmission Date: 20160305
  Serious: Yes (Life-Threatening)
  Sender: FDA-Public Use
  Company Number: JP-JNJFOC-20151210596

PATIENT
  Age: 80 Year
  Sex: Male

DRUGS (2)
  1. DUROTEP MT [Suspect]
     Active Substance: FENTANYL
     Indication: SEDATION
     Route: 062
  2. DUROTEP MT [Suspect]
     Active Substance: FENTANYL
     Indication: RESPIRATORY DISORDER
     Route: 062

REACTIONS (3)
  - Product use issue [Unknown]
  - Off label use [Unknown]
  - Adverse reaction [Unknown]

NARRATIVE: CASE EVENT DATE: 20120831
